FAERS Safety Report 8248077-X (Version None)
Quarter: 2012Q1

REPORT INFORMATION
  Report Type: 
  Country: None (occurrence: None)
  Receive Date: 20120330
  Receipt Date: 20120316
  Transmission Date: 20120608
  Serious: Yes (Hospitalization)
  Sender: FDA-Public Use
  Company Number: RU-CELGENEUS-251-21880-12012578

PATIENT
  Sex: Male
  Weight: 108 kg

DRUGS (8)
  1. REVLIMID [Suspect]
     Indication: MULTIPLE MYELOMA
     Route: 048
     Dates: start: 20111219, end: 20120205
  2. CIPROFLOXACIN HCL [Concomitant]
     Indication: ANTIBIOTIC PROPHYLAXIS
     Dosage: 500 MILLIGRAM
     Route: 048
     Dates: start: 20111218, end: 20120115
  3. ASPIRIN [Concomitant]
     Indication: ANTICOAGULANT THERAPY
     Dosage: 100 MILLIGRAM
     Route: 048
     Dates: start: 20111218
  4. ASPIRIN [Concomitant]
     Indication: ANTIPLATELET THERAPY
  5. CIPROFLOXACIN HCL [Concomitant]
     Dosage: 800 MILLIGRAM
     Route: 041
     Dates: start: 20120116
  6. LANSOPTOL [Concomitant]
     Dosage: 30 MILLIGRAM
     Route: 048
     Dates: start: 20111218
  7. DEXAMETHASONE [Suspect]
     Indication: MULTIPLE MYELOMA
     Route: 065
     Dates: start: 20111219, end: 20120206
  8. ZOMETA [Concomitant]
     Indication: PROPHYLAXIS
     Route: 041
     Dates: start: 20111217

REACTIONS (2)
  - SINUSITIS [None]
  - MYELODYSPLASTIC SYNDROME [None]
